FAERS Safety Report 7867251 (Version 2)
Quarter: 2013Q1

REPORT INFORMATION
  Report Type: Spontaneous
  Country: US (occurrence: None)
  Receive Date: 20110301
  Receipt Date: 20121009
  Transmission Date: 20140127
  Serious: Yes (Other)
  Sender: FDA-Public Use
  Company Number: 2011MA001477

PATIENT
  Sex: Female
  Weight: 73.03 kg

DRUGS (34)
  1. METOCLOPRAMIDE [Suspect]
     Indication: NAUSEA
     Route: 048
     Dates: start: 20080602, end: 20081115
  2. ALPRAZOLAM [Concomitant]
  3. AMITRYPTILINE [Concomitant]
  4. AZITHROMYCIN [Concomitant]
  5. BENICAR [Concomitant]
  6. CALCIUM [Concomitant]
  7. CARVEDILOL [Concomitant]
  8. CATAPRESS-TTS [Concomitant]
  9. CETIRIZINE [Concomitant]
  10. CLONIDINE [Concomitant]
  11. DIAZEPAM [Concomitant]
  12. DIOVAN [Concomitant]
  13. DOXAZOSIN [Concomitant]
  14. DOXYCYCLINE [Concomitant]
  15. ENULOSE [Concomitant]
  16. FEXOFENADINE [Concomitant]
  17. FUROSEMIDE [Concomitant]
  18. HYDROCODONE/APAP [Concomitant]
  19. IBUPROFEN [Concomitant]
  20. LACTULOSE [Concomitant]
  21. NEXIUM [Concomitant]
  22. NIFEDIAC [Concomitant]
  23. PANTOPRAZOLE [Concomitant]
  24. PHOSLO [Concomitant]
  25. PROAIR [Concomitant]
  26. PROPRANOLOL [Concomitant]
  27. RENAL SOFTGEL [Concomitant]
  28. RENVELA [Concomitant]
  29. REPLAX [Concomitant]
  30. TEKTURNA [Concomitant]
  31. TERAZOSIN [Concomitant]
  32. TOPAMAX [Concomitant]
  33. TRAMADOL [Concomitant]
  34. ZOLPIDEM [Concomitant]

REACTIONS (4)
  - Tardive dyskinesia [None]
  - Restless legs syndrome [None]
  - Emotional disorder [None]
  - Economic problem [None]
